FAERS Safety Report 10284159 (Version 1)
Quarter: 2014Q3

REPORT INFORMATION
  Report Type: Spontaneous
  Country: US (occurrence: None)
  Receive Date: 20140702
  Receipt Date: 20140702
  Transmission Date: 20150326
  Serious: No
  Sender: FDA-Public Use
  Company Number: None

PATIENT
  Age: 81 Year
  Sex: Male
  Weight: 87 kg

DRUGS (1)
  1. METOPROLOL [Suspect]
     Active Substance: METOPROLOL
     Indication: HYPERTENSION
     Dosage: 50 MG BID PO
     Route: 048
     Dates: start: 20130125, end: 20130212

REACTIONS (3)
  - Bradycardia [None]
  - Fatigue [None]
  - Asthenia [None]

NARRATIVE: CASE EVENT DATE: 20130213
